FAERS Safety Report 5834926-9 (Version None)
Quarter: 2008Q3

REPORT INFORMATION
  Report Type: 
  Country: None (occurrence: None)
  Receive Date: 20080804
  Receipt Date: 20080717
  Transmission Date: 20090109
  Serious: Yes (Life-Threatening, Hospitalization)
  Sender: FDA-Public Use
  Company Number: 8034989

PATIENT
  Age: 15 Year
  Sex: Female

DRUGS (1)
  1. METHYLPHENIDATE HCL [Suspect]
     Dosage: 10 MG ONCE PO
     Route: 048

REACTIONS (10)
  - AMNESIA [None]
  - BLOOD PRESSURE INCREASED [None]
  - BODY TEMPERATURE INCREASED [None]
  - CIRCULATORY COLLAPSE [None]
  - CYANOSIS [None]
  - HALLUCINATION, VISUAL [None]
  - IDIOSYNCRATIC DRUG REACTION [None]
  - INTENTIONAL DRUG MISUSE [None]
  - PULSE ABSENT [None]
  - RESPIRATORY ARREST [None]
